FAERS Safety Report 23735523 (Version 1)
Quarter: 2024Q2

REPORT INFORMATION
  Report Type: Spontaneous
  Country: US (occurrence: US)
  Receive Date: 20240412
  Receipt Date: 20240412
  Transmission Date: 20240716
  Serious: Yes (Hospitalization)
  Sender: FDA-Public Use
  Company Number: US-AMNEAL PHARMACEUTICALS-2024-AMRX-01178

PATIENT
  Age: 73 Year
  Sex: Female

DRUGS (2)
  1. ALYMSYS [Suspect]
     Active Substance: BEVACIZUMAB-MALY
     Indication: Product used for unknown indication
     Dosage: 400 MILLIGRAM (400MG/16ML), EVERY 2WK
     Route: 042
  2. ALYMSYS [Suspect]
     Active Substance: BEVACIZUMAB-MALY
     Dosage: 300 MILLIGRAM (100 MG 4/ML), EVERY 2WK
     Route: 042
     Dates: start: 20230913

REACTIONS (2)
  - Hospitalisation [Unknown]
  - Product dose omission issue [Unknown]

NARRATIVE: CASE EVENT DATE: 20230630
